FAERS Safety Report 8888148 (Version 1)
Quarter: 2012Q4

REPORT INFORMATION
  Report Type: 
  Country: DE (occurrence: DE)
  Receive Date: 20121106
  Receipt Date: 20121106
  Transmission Date: 20130627
  Serious: Yes (Other)
  Sender: FDA-Public Use
  Company Number: DE-US-EMD SERONO, INC.-7171875

PATIENT
  Age: 40 Year
  Sex: Female

DRUGS (5)
  1. OVITRELLE [Suspect]
     Indication: ASSISTED FERTILISATION
     Route: 058
     Dates: end: 2012
  2. OVITRELLE [Suspect]
     Route: 058
     Dates: end: 20121026
  3. GONADOTROPIN, CHORIONIC [Suspect]
     Indication: ASSISTED FERTILISATION
     Route: 058
     Dates: end: 20121026
  4. GONADOTROPIN, CHORIONIC [Suspect]
     Indication: ASSISTED FERTILISATION
     Route: 058
     Dates: end: 20121026
  5. L-THYROXIN [Concomitant]
     Indication: AUTOIMMUNE THYROIDITIS
     Route: 048

REACTIONS (1)
  - Hyperthyroidism [Recovered/Resolved]
